FAERS Safety Report 7921703 (Version 4)
Quarter: 2013Q3

REPORT INFORMATION
  Report Type: Spontaneous
  Country: US (occurrence: US)
  Receive Date: 20110429
  Receipt Date: 20130903
  Transmission Date: 20140515
  Serious: No
  Sender: FDA-Public Use
  Company Number: US-ASTRAZENECA-2010SE49925

PATIENT
  Age: 48 Year
  Sex: Female
  Weight: 113.4 kg

DRUGS (14)
  1. NEXIUM [Suspect]
     Indication: GASTROOESOPHAGEAL REFLUX DISEASE
     Route: 048
     Dates: end: 201307
  2. NEXIUM [Suspect]
     Indication: GASTROOESOPHAGEAL REFLUX DISEASE
     Route: 048
     Dates: end: 201307
  3. NAPROXEN SODIUM [Suspect]
     Indication: BACK DISORDER
     Route: 048
     Dates: start: 201308
  4. NAPROXEN SODIUM [Suspect]
     Indication: ARTHRITIS
     Route: 048
     Dates: start: 201308
  5. PREVACID [Suspect]
     Indication: ANTACID THERAPY
     Route: 065
  6. PREVACID [Suspect]
     Indication: ANTACID THERAPY
     Dosage: GENERIC, 15 MG, 2-4 TIMES DAILY
     Route: 048
     Dates: start: 2013
  7. ANTIBIOTIC [Concomitant]
  8. FLEXERIL [Concomitant]
     Indication: BACK PAIN
  9. FLEXERIL [Concomitant]
     Indication: MUSCULOSKELETAL DISCOMFORT
  10. FLEXERIL [Concomitant]
     Indication: PAIN
  11. STEROID [Concomitant]
     Indication: BACK DISORDER
  12. STEROID [Concomitant]
     Indication: ARTHRITIS
  13. MELOXICAM [Concomitant]
     Indication: BACK DISORDER
  14. MELOXICAM [Concomitant]
     Indication: ARTHRITIS

REACTIONS (21)
  - Aphagia [Unknown]
  - Dysphagia [Not Recovered/Not Resolved]
  - Dyspepsia [Unknown]
  - Urinary tract infection [Unknown]
  - Gastric disorder [Unknown]
  - Gastrooesophageal reflux disease [Unknown]
  - Joint injury [Not Recovered/Not Resolved]
  - Exostosis [Not Recovered/Not Resolved]
  - Nerve compression [Not Recovered/Not Resolved]
  - Musculoskeletal discomfort [Not Recovered/Not Resolved]
  - Spinal osteoarthritis [Not Recovered/Not Resolved]
  - Back pain [Unknown]
  - Pain [Unknown]
  - Intervertebral disc protrusion [Not Recovered/Not Resolved]
  - Polyarthritis [Unknown]
  - Malaise [Unknown]
  - Vomiting [Unknown]
  - Abdominal discomfort [Unknown]
  - Abdominal discomfort [Not Recovered/Not Resolved]
  - Drug dose omission [Unknown]
  - Intentional drug misuse [Unknown]
